FAERS Safety Report 18294424 (Version 1)
Quarter: 2020Q3

REPORT INFORMATION
  Report Type: Spontaneous
  Country: JP (occurrence: JP)
  Receive Date: 20200922
  Receipt Date: 20200922
  Transmission Date: 20201103
  Serious: Yes (Hospitalization, Other)
  Sender: FDA-Public Use
  Company Number: JP-MYLANLABS-2020M1079448

PATIENT
  Age: 5 Year
  Sex: Male

DRUGS (16)
  1. DEXAMETHASONE. [Suspect]
     Active Substance: DEXAMETHASONE
     Indication: LANGERHANS^ CELL HISTIOCYTOSIS
     Route: 065
  2. CYTARABINE. [Suspect]
     Active Substance: CYTARABINE
     Dosage: FOR FIRST RELAPSE
     Route: 065
     Dates: start: 199801
  3. VINBLASTINE [Suspect]
     Active Substance: VINBLASTINE
     Indication: XANTHOGRANULOMA
  4. CLADRIBINE. [Suspect]
     Active Substance: CLADRIBINE
     Indication: XANTHOGRANULOMA
     Route: 065
  5. VINCRISTINE [Suspect]
     Active Substance: VINCRISTINE
     Dosage: FOR FIRST RELAPSE OF DISEASE
     Route: 065
     Dates: start: 199801
  6. CYTARABINE. [Suspect]
     Active Substance: CYTARABINE
     Dosage: FOR 1 YEAR; TO TREAT SECOND RELAPSE OF DISEASE
     Route: 065
     Dates: start: 1999, end: 2000
  7. PREDNISOLONE. [Suspect]
     Active Substance: PREDNISOLONE
     Indication: XANTHOGRANULOMA
     Dosage: INJECTED LOCALLY
     Route: 061
  8. METHOTREXATE. [Suspect]
     Active Substance: METHOTREXATE
     Indication: LANGERHANS^ CELL HISTIOCYTOSIS
     Route: 065
  9. PREDNISOLONE. [Suspect]
     Active Substance: PREDNISOLONE
     Indication: LANGERHANS^ CELL HISTIOCYTOSIS
     Dosage: UNK
     Route: 065
     Dates: end: 199706
  10. PREDNISOLONE. [Suspect]
     Active Substance: PREDNISOLONE
     Dosage: FOR 1 YEAR; TO TREAT SECOND RELAPSE OF DISEASE
     Route: 065
     Dates: start: 1999, end: 2000
  11. CYTARABINE. [Suspect]
     Active Substance: CYTARABINE
     Indication: LANGERHANS^ CELL HISTIOCYTOSIS
     Dosage: UNK
     Route: 065
     Dates: end: 199706
  12. VINCRISTINE [Suspect]
     Active Substance: VINCRISTINE
     Dosage: FOR 1 YEAR; TO TREAT SECOND RELAPSE OF DISEASE
     Route: 065
     Dates: start: 1999, end: 2000
  13. VINCRISTINE [Suspect]
     Active Substance: VINCRISTINE
     Indication: LANGERHANS^ CELL HISTIOCYTOSIS
     Dosage: UNK
     Route: 065
     Dates: end: 199706
  14. MERCAPTOPURINE. [Suspect]
     Active Substance: MERCAPTOPURINE
     Indication: LANGERHANS^ CELL HISTIOCYTOSIS
     Route: 065
  15. PREDNISOLONE. [Suspect]
     Active Substance: PREDNISOLONE
     Indication: XANTHOGRANULOMA
     Dosage: FOR FIRST RELAPSE
     Route: 065
     Dates: start: 199801
  16. VINBLASTINE [Suspect]
     Active Substance: VINBLASTINE
     Indication: LANGERHANS^ CELL HISTIOCYTOSIS
     Route: 065

REACTIONS (6)
  - Ascites [Unknown]
  - Haemophagocytic lymphohistiocytosis [Unknown]
  - Pleural effusion [Unknown]
  - Xanthogranuloma [Recovered/Resolved]
  - Pancytopenia [Unknown]
  - Drug ineffective [Unknown]

NARRATIVE: CASE EVENT DATE: 200111
